FAERS Safety Report 7720455-4 (Version None)
Quarter: 2011Q3

REPORT INFORMATION
  Report Type: 
  Country: None (occurrence: None)
  Receive Date: 20110830
  Receipt Date: 20110830
  Transmission Date: 20111222
  Serious: Yes (Other)
  Sender: FDA-Public Use
  Company Number: None

PATIENT
  Sex: Female
  Weight: 75 kg

DRUGS (1)
  1. WARFARIN SODIUM [Suspect]
     Indication: ATRIAL FIBRILLATION
     Dosage: 3MG. OR MORE, VARIED WEEKLY DAILY ORAL
     Route: 048
     Dates: start: 20091231, end: 20110206

REACTIONS (3)
  - LOOSE TOOTH [None]
  - ALOPECIA [None]
  - MADAROSIS [None]
